FAERS Safety Report 6963115-X (Version None)
Quarter: 2010Q3

REPORT INFORMATION
  Report Type: 
  Country: None (occurrence: None)
  Receive Date: 20100823
  Receipt Date: 20100521
  Transmission Date: 20110219
  Serious: No
  Sender: FDA-Public Use
  Company Number: 012376

PATIENT
  Sex: Female
  Weight: 48 kg

DRUGS (6)
  1. CIMZIA [Suspect]
     Indication: CROHN'S DISEASE
     Dosage: (SUBCUTANEOUS)
     Route: 058
     Dates: start: 20090101
  2. BUDESONIDE [Concomitant]
  3. CIPROFLOXACIN [Concomitant]
  4. FLAGYL [Concomitant]
  5. IMURAN [Concomitant]
  6. CLONAZEPAM [Concomitant]

REACTIONS (1)
  - FUNGAL INFECTION [None]
